FAERS Safety Report 7438388-X (Version None)
Quarter: 2011Q2

REPORT INFORMATION
  Report Type: 
  Country: None (occurrence: None)
  Receive Date: 20110426
  Receipt Date: 20110403
  Transmission Date: 20111010
  Serious: Yes (Hospitalization, Other)
  Sender: FDA-Public Use
  Company Number: US-BAYER-201037139NA

PATIENT
  Age: 44 Year
  Sex: Female
  Weight: 175 kg

DRUGS (16)
  1. CIPRO [Concomitant]
     Dosage: UNK
     Dates: start: 20081120
  2. TRAMADOL [Concomitant]
     Dosage: 150 MG, QD
     Dates: start: 20081126
  3. YAZ [Suspect]
     Indication: ORAL CONTRACEPTION
     Dosage: UNK UNK, UNK
     Route: 048
     Dates: start: 20080401, end: 20081001
  4. DETROL LA [Concomitant]
     Dosage: 4 MG, UNK
  5. CIPROFLOXACIN HCL [Concomitant]
     Dosage: 250 MG, BID
     Dates: start: 20081107
  6. VERSICARE [Concomitant]
  7. CIPROFLAOXACIN [Concomitant]
     Dosage: 250 MG, UNK
     Dates: start: 20081107
  8. YAZ [Suspect]
     Indication: MENORRHAGIA
  9. PROZAC [Concomitant]
     Dosage: 20 MG, QD
     Dates: start: 20081126
  10. DETROL [Concomitant]
     Dosage: 20 MG, QD
     Dates: start: 20081126
  11. NEURONTIN [Concomitant]
     Indication: NERVE COMPRESSION
  12. NEURONTIN [Concomitant]
     Dosage: 300 MG, QD
     Dates: start: 20081126
  13. CIPROFLOXACIN HCL [Concomitant]
     Dosage: UNK
  14. TRAMADOL [Concomitant]
     Dosage: 50 MG, UNK
     Dates: start: 20081108
  15. IRON [Concomitant]
  16. GABAPENTIN [Concomitant]
     Dosage: 300 MG, UNK

REACTIONS (2)
  - EMOTIONAL DISTRESS [None]
  - PULMONARY EMBOLISM [None]
